FAERS Safety Report 11073663 (Version 2)
Quarter: 2018Q4

REPORT INFORMATION
  Report Type: Spontaneous
  Country: FR (occurrence: FR)
  Receive Date: 20150428
  Receipt Date: 20181113
  Transmission Date: 20190204
  Serious: Yes (Life-Threatening, Hospitalization, Other)
  Sender: FDA-Public Use
  Company Number: PHHY2015FR046980

PATIENT
  Age: 50 Year
  Sex: Female

DRUGS (3)
  1. TRAMADOL. [Interacting]
     Active Substance: TRAMADOL
     Indication: PRODUCT USED FOR UNKNOWN INDICATION
     Dosage: 39 G, UNK (MISUSE)
     Route: 048
     Dates: start: 20140601, end: 20140602
  2. THIOPENTAL INRESA [Suspect]
     Active Substance: THIOPENTAL
     Indication: STATUS EPILEPTICUS
     Dosage: UNK(400MG IN BOLUS THEN 40MG / H)
     Route: 065
  3. ALPRAZOLAM. [Suspect]
     Active Substance: ALPRAZOLAM
     Indication: PRODUCT USED FOR UNKNOWN INDICATION
     Dosage: 15 G, UNK (MISUSE)
     Route: 048

REACTIONS (21)
  - Somnolence [Recovered/Resolved]
  - Seizure [Recovered/Resolved]
  - Intentional overdose [Recovered/Resolved]
  - Cyanosis central [Recovered/Resolved]
  - Respiratory depression [Recovered/Resolved]
  - Respiratory arrest [Unknown]
  - Epilepsy [Unknown]
  - Haemodynamic instability [Recovering/Resolving]
  - Cardiogenic shock [Recovered/Resolved]
  - Ventricular tachycardia [Recovered/Resolved]
  - Coma [Recovered/Resolved with Sequelae]
  - Conduction disorder [Recovering/Resolving]
  - Cyanosis [Unknown]
  - Drug interaction [Recovered/Resolved]
  - Ventricular fibrillation [Recovered/Resolved with Sequelae]
  - Mydriasis [Recovered/Resolved]
  - Atrioventricular block [Recovering/Resolving]
  - Status epilepticus [Recovered/Resolved]
  - Ejection fraction decreased [Recovered/Resolved]
  - Electrocardiogram QRS complex prolonged [Recovering/Resolving]
  - Partial seizures [Unknown]

NARRATIVE: CASE EVENT DATE: 20140602
